FAERS Safety Report 6752199-X (Version None)
Quarter: 2010Q2

REPORT INFORMATION
  Report Type: 
  Country: None (occurrence: None)
  Receive Date: 20100526
  Receipt Date: 20100405
  Transmission Date: 20101027
  Serious: No
  Sender: FDA-Public Use
  Company Number: 307242

PATIENT
  Sex: Female

DRUGS (1)
  1. VICTOZA [Suspect]
     Indication: TYPE 2 DIABETES MELLITUS
     Dosage: 1.8 U, QD. SUBCUTANEOUS
     Route: 058

REACTIONS (3)
  - ASTHENIA [None]
  - INJECTION SITE PAIN [None]
  - NAUSEA [None]
